FAERS Safety Report 17959171 (Version 5)
Quarter: 2021Q1

REPORT INFORMATION
  Report Type: Spontaneous
  Country: BR (occurrence: BR)
  Receive Date: 20200629
  Receipt Date: 20210113
  Transmission Date: 20210419
  Serious: Yes (Hospitalization, Other)
  Sender: FDA-Public Use
  Company Number: BR-GLAXOSMITHKLINE-BR2019AMR215718

PATIENT
  Sex: Female
  Weight: 64 kg

DRUGS (1)
  1. BENLYSTA [Suspect]
     Active Substance: BELIMUMAB
     Indication: SYSTEMIC LUPUS ERYTHEMATOSUS
     Dosage: 640 MG
     Dates: start: 20191031

REACTIONS (23)
  - Urinary retention [Unknown]
  - Respiratory tract infection [Recovered/Resolved]
  - Systemic lupus erythematosus [Unknown]
  - Sinusitis [Unknown]
  - Dyschezia [Unknown]
  - Constipation [Unknown]
  - Urinary tract infection [Recovered/Resolved]
  - COVID-19 [Not Recovered/Not Resolved]
  - Pharyngitis [Unknown]
  - Symptom recurrence [Unknown]
  - Inappropriate schedule of product administration [Unknown]
  - Abdominal pain [Unknown]
  - Product availability issue [Unknown]
  - Computerised tomogram abnormal [Unknown]
  - Bacterial infection [Unknown]
  - Arthralgia [Unknown]
  - Adverse event [Unknown]
  - Bone marrow oedema [Unknown]
  - Pathogen resistance [Unknown]
  - Fungal infection [Unknown]
  - Social problem [Unknown]
  - Bladder pain [Unknown]
  - Weight increased [Unknown]
